FAERS Safety Report 7523190-0 (Version None)
Quarter: 2011Q2

REPORT INFORMATION
  Report Type: 
  Country: None (occurrence: None)
  Receive Date: 20110603
  Receipt Date: 20110523
  Transmission Date: 20111010
  Serious: Yes (Hospitalization)
  Sender: FDA-Public Use
  Company Number: US-ELI_LILLY_AND_COMPANY-US201103003655

PATIENT
  Sex: Female
  Weight: 101.13 kg

DRUGS (14)
  1. WELLBUTRIN [Concomitant]
     Dosage: UNK
  2. VITAMIN E [Concomitant]
     Dosage: UNK
  3. LEVSIN [Concomitant]
     Dosage: UNK
  4. PHAZYME [Concomitant]
     Dosage: UNK
  5. VITAMINS [Concomitant]
     Dosage: UNK
  6. HUMALOG [Suspect]
     Indication: DIABETES MELLITUS
     Dosage: UNK, 2/D
  7. MAXZIDE [Concomitant]
     Dosage: UNK
  8. ATIVAN [Concomitant]
     Dosage: UNK
  9. LOSARTAN POTASSIUM [Concomitant]
     Dosage: UNK
  10. XALATAN [Concomitant]
     Dosage: UNK
  11. HUMULIN N [Suspect]
     Indication: DIABETES MELLITUS
     Dosage: 84 U, QD
     Route: 058
     Dates: start: 20060101
  12. NEXIUM [Concomitant]
     Dosage: UNK
  13. CALCIUM CARBONATE [Concomitant]
     Dosage: UNK
  14. KERLONE [Concomitant]
     Dosage: UNK

REACTIONS (6)
  - FATIGUE [None]
  - SOMNOLENCE [None]
  - JOINT SWELLING [None]
  - DECREASED APPETITE [None]
  - VOMITING [None]
  - DIARRHOEA [None]
